FAERS Safety Report 9675989 (Version 1)
Quarter: 2013Q4

REPORT INFORMATION
  Report Type: Spontaneous
  Country: US (occurrence: US)
  Receive Date: 20131107
  Receipt Date: 20131107
  Transmission Date: 20140711
  Serious: No
  Sender: FDA-Public Use
  Company Number: US-009507513-1310USA009959

PATIENT
  Age: 25 Year
  Sex: Female
  Weight: 87.75 kg

DRUGS (1)
  1. NEXPLANON [Suspect]
     Indication: CONTRACEPTION
     Dosage: 1 ROD UP TO 3 YEARS, UNDER THE SKIN ON THE LEFT ARM
     Route: 059
     Dates: start: 20130823

REACTIONS (4)
  - Alopecia [Unknown]
  - Menstruation irregular [Unknown]
  - Dysmenorrhoea [Unknown]
  - Metrorrhagia [Unknown]
